FAERS Safety Report 6476697-1 (Version None)
Quarter: 2009Q4

REPORT INFORMATION
  Report Type: 
  Country: None (occurrence: None)
  Receive Date: 20091207
  Receipt Date: 20091112
  Transmission Date: 20100525
  Serious: No
  Sender: FDA-Public Use
  Company Number: CH-ROCHE-668679

PATIENT
  Sex: Male
  Weight: 3 kg

DRUGS (1)
  1. TAMIFLU [Suspect]
     Indication: INFLUENZA
     Dates: start: 20090903, end: 20090903

REACTIONS (2)
  - NO ADVERSE EVENT [None]
  - NORMAL NEWBORN [None]
